FAERS Safety Report 7002818-8 (Version None)
Quarter: 2010Q3

REPORT INFORMATION
  Report Type: 
  Country: None (occurrence: None)
  Receive Date: 20100920
  Receipt Date: 20070607
  Transmission Date: 20110219
  Serious: Yes (Hospitalization, Other)
  Sender: FDA-Public Use
  Company Number: US-ASTRAZENECA-2006UW22717

PATIENT
  Age: 14298 Day
  Sex: Female
  Weight: 80.3 kg

DRUGS (10)
  1. SEROQUEL [Suspect]
     Indication: BIPOLAR DISORDER
     Dosage: 100 MG-400 MG
     Route: 048
     Dates: start: 20030708
  2. ABILIFY [Concomitant]
     Dosage: 15 MG-20 MG
     Route: 048
     Dates: start: 20031017
  3. ZYPREXA [Concomitant]
     Dates: end: 20030703
  4. TRILEPTAL [Concomitant]
     Dates: start: 20030703
  5. BUSPAR [Concomitant]
     Dosage: 15 MG DAILY, 15 MG BID
     Route: 048
     Dates: start: 20030703
  6. LEXAPRO [Concomitant]
     Dosage: 10 MG-20 MG
     Route: 048
     Dates: start: 20030708
  7. ZOCOR [Concomitant]
     Route: 048
     Dates: start: 20031017
  8. NOVOLOG MIX 70/30 [Concomitant]
     Dosage: 40 U Q AM AND 38 U Q PM
     Route: 058
     Dates: start: 20031017
  9. METFORMIN HCL [Concomitant]
     Route: 048
     Dates: start: 20030101
  10. BACMIN [Concomitant]
     Dosage: 1 TABLET DAILY
     Route: 048
     Dates: start: 20031017

REACTIONS (5)
  - DIABETES MELLITUS [None]
  - DIABETES MELLITUS INADEQUATE CONTROL [None]
  - DIABETIC KETOACIDOSIS [None]
  - TYPE 1 DIABETES MELLITUS [None]
  - TYPE 2 DIABETES MELLITUS [None]
